FAERS Safety Report 19362694 (Version 1)
Quarter: 2021Q2

REPORT INFORMATION
  Report Type: Spontaneous
  Country: US (occurrence: US)
  Receive Date: 20210602
  Receipt Date: 20210602
  Transmission Date: 20210717
  Serious: Yes (Hospitalization, Other)
  Sender: FDA-Public Use
  Company Number: US-SA-2021SA173759

PATIENT
  Age: 75 Year
  Sex: Male

DRUGS (5)
  1. LANTUS [Suspect]
     Active Substance: INSULIN GLARGINE
     Dosage: 26 U, BED TIME
     Route: 065
  2. INSULIN LISPRO [Suspect]
     Active Substance: INSULIN LISPRO
     Dosage: 16 IU, QD
     Route: 058
  3. LANTUS [Suspect]
     Active Substance: INSULIN GLARGINE
     Indication: PRODUCT USED FOR UNKNOWN INDICATION
     Dosage: 26 U, AT 3 PM
     Route: 065
  4. INSULIN LISPRO [Suspect]
     Active Substance: INSULIN LISPRO
     Dosage: 20 IU
     Route: 058
  5. INSULIN LISPRO [Suspect]
     Active Substance: INSULIN LISPRO
     Indication: TYPE 1 DIABETES MELLITUS
     Dosage: 16 IU, QD
     Route: 058

REACTIONS (13)
  - Unresponsive to stimuli [Unknown]
  - Blood glucose increased [Unknown]
  - Product administered at inappropriate site [Unknown]
  - Hyperhidrosis [Unknown]
  - Vomiting [Unknown]
  - Facial discomfort [Unknown]
  - Injection site induration [Unknown]
  - Incorrect dose administered [Unknown]
  - Seizure [Recovered/Resolved]
  - Blood glucose decreased [Unknown]
  - Shock hypoglycaemic [Unknown]
  - Diabetes mellitus inadequate control [Unknown]
  - Blindness transient [Recovered/Resolved]
